FAERS Safety Report 22714651 (Version 3)
Quarter: 2023Q4

REPORT INFORMATION
  Report Type: Spontaneous
  Country: US (occurrence: US)
  Receive Date: 20230718
  Receipt Date: 20231214
  Transmission Date: 20240109
  Serious: Yes (Disabling)
  Sender: FDA-Public Use
  Company Number: US-SA-SAC20230714001226

PATIENT
  Age: 4 Year
  Sex: Male

DRUGS (2)
  1. DUPIXENT [Suspect]
     Active Substance: DUPILUMAB
     Indication: Eczema
     Dosage: 300 MG, Q4W
     Route: 058
     Dates: start: 20230705
  2. DUPIXENT [Suspect]
     Active Substance: DUPILUMAB
     Indication: Dermatitis atopic

REACTIONS (8)
  - Loss of personal independence in daily activities [Unknown]
  - Affective disorder [Unknown]
  - Initial insomnia [Unknown]
  - Pruritus [Unknown]
  - Conjunctivitis [Not Recovered/Not Resolved]
  - Ocular hyperaemia [Unknown]
  - Eye discharge [Unknown]
  - Photophobia [Unknown]

NARRATIVE: CASE EVENT DATE: 20230101
